FAERS Safety Report 7202171-0 (Version None)
Quarter: 2010Q4

REPORT INFORMATION
  Report Type: 
  Country: None (occurrence: None)
  Receive Date: 20101229
  Receipt Date: 20101216
  Transmission Date: 20110411
  Serious: Yes (Other)
  Sender: FDA-Public Use
  Company Number: PHHY2010MX39162

PATIENT
  Age: 65 Year
  Sex: Female

DRUGS (4)
  1. ACLASTA [Suspect]
     Indication: OSTEOPOROSIS
     Dosage: 5MG/100 ML YEARLY ONCE
     Route: 042
     Dates: start: 20100604
  2. ATORVASTATIN [Concomitant]
  3. OMEPRAZOLE [Concomitant]
  4. STEROIDS NOS [Suspect]

REACTIONS (13)
  - BLOOD CREATININE ABNORMAL [None]
  - BLOOD UREA ABNORMAL [None]
  - EYE PAIN [None]
  - EYELID OEDEMA [None]
  - KERATITIS [None]
  - LACRIMATION INCREASED [None]
  - OCULAR HYPERAEMIA [None]
  - RENAL FAILURE ACUTE [None]
  - RENAL FUNCTION TEST ABNORMAL [None]
  - RHINITIS [None]
  - UPPER AIRWAY OBSTRUCTION [None]
  - URINE OUTPUT DECREASED [None]
  - VISION BLURRED [None]
